FAERS Safety Report 12719203 (Version 2)
Quarter: 2016Q4

REPORT INFORMATION
  Report Type: Spontaneous
  Country: US (occurrence: US)
  Receive Date: 20160907
  Receipt Date: 20161031
  Transmission Date: 20170207
  Serious: No
  Sender: FDA-Public Use
  Company Number: US-JNJFOC-20160813960

PATIENT
  Age: 72 Year
  Sex: Female
  Weight: 82.56 kg

DRUGS (1)
  1. FENTANYL. [Suspect]
     Active Substance: FENTANYL
     Indication: PAIN
     Route: 062

REACTIONS (11)
  - Gastric disorder [Recovered/Resolved]
  - Malaise [Recovered/Resolved]
  - Memory impairment [Recovered/Resolved]
  - Drug dose omission [Unknown]
  - Anger [Recovered/Resolved]
  - Nervousness [Recovered/Resolved]
  - Wrong technique in product usage process [Unknown]
  - Headache [Recovered/Resolved]
  - Insomnia [Recovered/Resolved]
  - Product quality issue [Unknown]
  - Withdrawal syndrome [Recovered/Resolved]

NARRATIVE: CASE EVENT DATE: 201607
